FAERS Safety Report 22704205 (Version 4)
Quarter: 2023Q4

REPORT INFORMATION
  Report Type: Spontaneous
  Country: DE (occurrence: DE)
  Receive Date: 20230714
  Receipt Date: 20231004
  Transmission Date: 20240109
  Serious: Yes (Life-Threatening, Hospitalization, Other)
  Sender: FDA-Public Use
  Company Number: DE-002147023-NVSC2023DE147894

PATIENT
  Age: 72 Year
  Sex: Female
  Weight: 64 kg

DRUGS (18)
  1. LETROZOLE [Suspect]
     Active Substance: LETROZOLE
     Indication: Breast cancer
     Dosage: 2.5 MILLIGRAM, ONCE A DAY (2.5 MG, QD)
     Route: 048
     Dates: start: 20220203
  2. PALBOCICLIB [Suspect]
     Active Substance: PALBOCICLIB
     Indication: Breast cancer
     Dosage: 125 MILLIGRAM, ONCE A DAY (125 MG, QD (DAY 1 TO DAY 21 EVERY 28 DAYS))
     Route: 048
     Dates: start: 20220203, end: 20220810
  3. PALBOCICLIB [Suspect]
     Active Substance: PALBOCICLIB
     Dosage: 100 MILLIGRAM, ONCE A DAY (100 MG, QD (DAY 1 TO DAY 21 EVERY 28 DAYS))
     Route: 048
     Dates: start: 20220818
  4. DRONABINOL [Concomitant]
     Active Substance: DRONABINOL
     Indication: Trigeminal neuralgia
     Dosage: UNK
     Route: 048
     Dates: start: 20221213
  5. FERRO-SANOL DUODENAL [Concomitant]
     Active Substance: FERROUS GLYCINE SULFATE
     Indication: Prophylaxis
     Dosage: UNK
     Route: 048
     Dates: start: 20220330
  6. GABAPENTIN [Concomitant]
     Active Substance: GABAPENTIN
     Indication: Trigeminal neuralgia
     Dosage: UNK
     Route: 048
     Dates: start: 2019
  7. LEVOMETHADONE [Concomitant]
     Active Substance: LEVOMETHADONE
     Indication: Trigeminal neuralgia
     Dosage: UNK
     Route: 048
     Dates: start: 20220420
  8. NAPROXEN [Concomitant]
     Active Substance: NAPROXEN
     Indication: Intervertebral disc protrusion
     Dosage: UNK
     Route: 048
     Dates: start: 202109
  9. NAPROXEN [Concomitant]
     Active Substance: NAPROXEN
     Dosage: 500 MILLIGRAM
     Route: 048
     Dates: start: 20230612, end: 20230614
  10. PREGABALIN [Concomitant]
     Active Substance: PREGABALIN
     Indication: Trigeminal neuralgia
     Dosage: UNK
     Route: 048
     Dates: start: 20220321
  11. PANTOZOL [Concomitant]
     Active Substance: PANTOPRAZOLE SODIUM
     Indication: Prophylaxis
     Dosage: UNK
     Route: 048
     Dates: start: 2019
  12. VITAMIN B12 [Concomitant]
     Active Substance: CYANOCOBALAMIN
     Indication: Trigeminal neuralgia
     Dosage: UNK
     Route: 048
     Dates: start: 202202
  13. CHOLECALCIFEROL [Concomitant]
     Active Substance: CHOLECALCIFEROL
     Indication: Prophylaxis
     Dosage: UNK
     Route: 048
     Dates: start: 20230616
  14. FERROUS SULFATE [Concomitant]
     Active Substance: FERROUS SULFATE
     Indication: Prophylaxis
     Dosage: UNK
     Route: 048
     Dates: start: 20230612
  15. CHOLECALCIFEROL [Concomitant]
     Active Substance: CHOLECALCIFEROL
     Indication: Prophylaxis
     Dosage: UNK
     Route: 048
  16. PROLIA [Concomitant]
     Active Substance: DENOSUMAB
     Indication: Product used for unknown indication
     Dosage: 600 MILLIGRAM
     Route: 058
     Dates: start: 20230728
  17. CARBAMAZEPINE [Concomitant]
     Active Substance: CARBAMAZEPINE
     Indication: Trigeminal neuralgia
     Dosage: UNK
     Route: 048
     Dates: start: 20230622
  18. VENLAFAXINE HYDROCHLORIDE [Concomitant]
     Active Substance: VENLAFAXINE HYDROCHLORIDE
     Indication: Depression
     Dosage: UNK
     Route: 065
     Dates: start: 202109

REACTIONS (3)
  - Pelvic fracture [Recovered/Resolved]
  - Osteopenia [Unknown]
  - Fall [Unknown]

NARRATIVE: CASE EVENT DATE: 20230612
